FAERS Safety Report 22805662 (Version 9)
Quarter: 2023Q4

REPORT INFORMATION
  Report Type: Report from Study
  Country: US (occurrence: US)
  Receive Date: 20230809
  Receipt Date: 20231225
  Transmission Date: 20240110
  Serious: No
  Sender: FDA-Public Use
  Company Number: US-002147023-NVSC2023US173603

PATIENT
  Sex: Female

DRUGS (1)
  1. KESIMPTA [Suspect]
     Active Substance: OFATUMUMAB
     Indication: Multiple sclerosis
     Dosage: 20 MG, QMO
     Route: 058
     Dates: start: 20230801

REACTIONS (4)
  - Oropharyngeal pain [Recovered/Resolved]
  - Throat irritation [Not Recovered/Not Resolved]
  - Arthritis [Unknown]
  - Sinusitis [Unknown]
